FAERS Safety Report 8879631 (Version 1)
Quarter: 2012Q4

REPORT INFORMATION
  Report Type: Report from Study
  Country: US (occurrence: US)
  Receive Date: 20121101
  Receipt Date: 20121101
  Transmission Date: 20130627
  Serious: Yes (Hospitalization)
  Sender: FDA-Public Use
  Company Number: US-ASTELLAS-2012US007233

PATIENT
  Sex: Male

DRUGS (1)
  1. ERLOTINIB TABLET [Suspect]
     Indication: MALIGNANT NEOPLASM OF THORAX
     Dosage: 150 mg, UID/QD
     Route: 048
     Dates: start: 20120703

REACTIONS (4)
  - Off label use [Unknown]
  - Arthropod bite [Unknown]
  - Dyspnoea [Unknown]
  - Diarrhoea [Unknown]
